FAERS Safety Report 16657741 (Version 1)
Quarter: 2019Q3

REPORT INFORMATION
  Report Type: Spontaneous
  Country: US (occurrence: US)
  Receive Date: 20190801
  Receipt Date: 20190801
  Transmission Date: 20191004
  Serious: Yes (Hospitalization, Other)
  Sender: FDA-Public Use
  Company Number: US-SA-2019SA206310

PATIENT
  Age: 58 Year
  Sex: Female
  Weight: 53.5 kg

DRUGS (13)
  1. METOPROLOLSUCCINAAT [Concomitant]
     Active Substance: METOPROLOL SUCCINATE
  2. LORAZEPAM. [Concomitant]
     Active Substance: LORAZEPAM
  3. ALBUTEROL [SALBUTAMOL] [Concomitant]
     Active Substance: ALBUTEROL
  4. LIDOCAINE. [Concomitant]
     Active Substance: LIDOCAINE
  5. ROSUVASTATIN. [Concomitant]
     Active Substance: ROSUVASTATIN
  6. ICOSAPENT ETHYL [Concomitant]
     Active Substance: ICOSAPENT ETHYL
  7. ALIROCUMAB [Suspect]
     Active Substance: ALIROCUMAB
  8. EZETIMIBE. [Concomitant]
     Active Substance: EZETIMIBE
  9. FENOFIBRATE. [Concomitant]
     Active Substance: FENOFIBRATE
  10. FLUTICASONE. [Concomitant]
     Active Substance: FLUTICASONE
  11. LATANOPROST. [Concomitant]
     Active Substance: LATANOPROST
  12. OXYCODONE-ACET [Concomitant]
     Active Substance: ACETAMINOPHEN\OXYCODONE HYDROCHLORIDE
  13. DICLOFENAC [Concomitant]
     Active Substance: DICLOFENAC

REACTIONS (5)
  - Asthenia [Recovered/Resolved]
  - Ischaemic stroke [Recovered/Resolved]
  - Pain [Recovered/Resolved]
  - Hypoaesthesia [Recovered/Resolved]
  - Speech disorder [Recovered/Resolved]

NARRATIVE: CASE EVENT DATE: 20190715
